FAERS Safety Report 5393387-7 (Version None)
Quarter: 2007Q3

REPORT INFORMATION
  Report Type: 
  Country: None (occurrence: None)
  Receive Date: 20070718
  Receipt Date: 20070718
  Transmission Date: 20080115
  Serious: No
  Sender: FDA-Public Use
  Company Number: None

PATIENT
  Age: 25 Year
  Sex: Female
  Weight: 81.6475 kg

DRUGS (4)
  1. METRONIDAZOLE [Suspect]
     Indication: VAGINAL DISCHARGE
     Dosage: ONE FULL APPLICATOR ONE A DAY VAG
     Route: 067
     Dates: start: 20070624, end: 20070629
  2. METRONIDAZOLE [Suspect]
     Indication: VAGINAL INFECTION
     Dosage: ONE FULL APPLICATOR ONE A DAY VAG
     Route: 067
     Dates: start: 20070624, end: 20070629
  3. METRONIDAZOLE [Suspect]
     Indication: VAGINAL DISCHARGE
     Dosage: ONE FULL APPLICATOR ONE A DAY VAG
     Route: 067
     Dates: start: 20070712, end: 20070718
  4. METRONIDAZOLE [Suspect]
     Indication: VAGINAL INFECTION
     Dosage: ONE FULL APPLICATOR ONE A DAY VAG
     Route: 067
     Dates: start: 20070712, end: 20070718

REACTIONS (4)
  - CERVICITIS [None]
  - DIZZINESS [None]
  - FATIGUE [None]
  - VAGINAL HAEMORRHAGE [None]
